FAERS Safety Report 19718429 (Version 4)
Quarter: 2021Q3

REPORT INFORMATION
  Report Type: Report from Study
  Country: US (occurrence: US)
  Receive Date: 20210818
  Receipt Date: 20210923
  Transmission Date: 20211014
  Serious: No
  Sender: FDA-Public Use
  Company Number: NVSC2021US184761

PATIENT
  Age: 48 Year
  Sex: Female
  Weight: 70.3 kg

DRUGS (3)
  1. ENTRESTO [Suspect]
     Active Substance: SACUBITRIL\VALSARTAN
     Indication: PRODUCT USED FOR UNKNOWN INDICATION
  2. ENTRESTO [Suspect]
     Active Substance: SACUBITRIL\VALSARTAN
     Indication: CARDIAC FAILURE CHRONIC
     Dosage: UNK
     Route: 065
  3. LASIX [Concomitant]
     Active Substance: FUROSEMIDE
     Indication: DIURETIC THERAPY
     Dosage: UNK
     Route: 065

REACTIONS (14)
  - Depressed mood [Unknown]
  - Malaise [Unknown]
  - Viral test [Unknown]
  - Nervousness [Unknown]
  - Cardiac stress test [Unknown]
  - Sleep disorder [Unknown]
  - Echocardiogram [Unknown]
  - Decreased activity [Unknown]
  - Fatigue [Unknown]
  - Weight increased [Unknown]
  - Catheterisation cardiac [Unknown]
  - Fluid retention [Unknown]
  - Heart rate irregular [Unknown]
  - Dyspnoea [Unknown]
